FAERS Safety Report 4385406-1 (Version None)
Quarter: 2004Q2

REPORT INFORMATION
  Report Type: 
  Country: None (occurrence: None)
  Receive Date: 20040622
  Receipt Date: 20040616
  Transmission Date: 20050107
  Serious: Yes (Other)
  Sender: FDA-Public Use
  Company Number: STA-AE-04-MTX-268

PATIENT
  Age: 85 Year
  Sex: Female

DRUGS (15)
  1. METHOTREXATE [Suspect]
     Indication: RHEUMATOID ARTHRITIS
     Dosage: 22.5 MG 1X PER 1 WK, ORAL
     Route: 048
     Dates: start: 20021209
  2. ENBREL [Suspect]
     Indication: RHEUMATOID ARTHRITIS
     Dosage: 25 MG 2X PER 1 WK, SC
     Route: 058
     Dates: start: 20030501, end: 20030606
  3. ENBREL [Suspect]
     Indication: RHEUMATOID ARTHRITIS
     Dosage: 25 MG 2X PER 1 WK, SC
     Route: 058
     Dates: start: 20030722, end: 20030903
  4. PREDNISONE [Concomitant]
  5. ACTONEL [Concomitant]
  6. PROTONIX [Concomitant]
  7. HYDROCHLOROTHIAZIDE [Concomitant]
  8. FOLIC ACID [Concomitant]
  9. TOPROL-XL [Concomitant]
  10. SYNTHROID [Concomitant]
  11. TEMAZEPAM [Concomitant]
  12. LASIX [Concomitant]
  13. ZYDONE (HYDROCODONE BITARTRATE/PARACETAMOL) [Concomitant]
  14. ALTACE [Concomitant]
  15. DURAGESIC [Concomitant]

REACTIONS (5)
  - ARTHRALGIA [None]
  - COUGH [None]
  - DYSPNOEA [None]
  - LUNG NEOPLASM [None]
  - METASTATIC NEOPLASM [None]
